FAERS Safety Report 4983951-9 (Version None)
Quarter: 2006Q1

REPORT INFORMATION
  Report Type: 
  Country: None (occurrence: None)
  Receive Date: 20060301
  Receipt Date: 20051205
  Transmission Date: 20060701
  Serious: No
  Sender: FDA-Public Use
  Company Number: S05-USA-05185-01

PATIENT
  Age: 80 Year
  Sex: Male

DRUGS (5)
  1. NAMENDA [Suspect]
     Indication: MEMORY IMPAIRMENT
     Dosage: 5 MG BID PO
     Route: 048
     Dates: start: 20051128
  2. NAMENDA [Suspect]
     Indication: MEMORY IMPAIRMENT
     Dosage: 5 MG QD PO
     Route: 048
     Dates: start: 20051121, end: 20051127
  3. SALSALATE [Concomitant]
  4. BLOOD PRESSURE MEDICATION (NOS) [Concomitant]
  5. HIGH CHOLESTEROL MEDICATION (NOS) [Concomitant]

REACTIONS (1)
  - RHEUMATOID ARTHRITIS [None]
